FAERS Safety Report 6851057-X (Version None)
Quarter: 2010Q3

REPORT INFORMATION
  Report Type: 
  Country: None (occurrence: None)
  Receive Date: 20100716
  Receipt Date: 20071026
  Transmission Date: 20110219
  Serious: No
  Sender: FDA-Public Use
  Company Number: US-PFIZER INC-2007091585

PATIENT
  Age: 36 Year
  Sex: Female
  Weight: 77.272 kg

DRUGS (1)
  1. CHANTIX [Suspect]
     Indication: SMOKING CESSATION THERAPY
     Dates: start: 20071022

REACTIONS (3)
  - BACK PAIN [None]
  - DIZZINESS [None]
  - PRESYNCOPE [None]
